FAERS Safety Report 4738075-2 (Version None)
Quarter: 2005Q3

REPORT INFORMATION
  Report Type: 
  Country: None (occurrence: None)
  Receive Date: 20050805
  Receipt Date: 20050805
  Transmission Date: 20060218
  Serious: Yes (Hospitalization)
  Sender: FDA-Public Use
  Company Number: None

PATIENT
  Age: 44 Year
  Sex: Male

DRUGS (7)
  1. DOCETAXEL [Suspect]
  2. REVLIMID [Suspect]
  3. DOCETAXEL [Concomitant]
  4. REVLIMID [Concomitant]
  5. FENTANYL [Concomitant]
  6. OXYCONTIN [Concomitant]
  7. OXYCODONE [Concomitant]

REACTIONS (3)
  - CANCER PAIN [None]
  - DISEASE PROGRESSION [None]
  - PYREXIA [None]
